FAERS Safety Report 5529185-0 (Version None)
Quarter: 2007Q4

REPORT INFORMATION
  Report Type: 
  Country: None (occurrence: None)
  Receive Date: 20071129
  Receipt Date: 20070416
  Transmission Date: 20080405
  Serious: No
  Sender: FDA-Public Use
  Company Number: A0647422A

PATIENT
  Age: 59 Year
  Sex: Female

DRUGS (8)
  1. WELLBUTRIN SR [Suspect]
     Indication: DEPRESSION
     Dosage: 150MG TWICE PER DAY
     Route: 048
     Dates: start: 20070411
  2. ADVAIR DISKUS 100/50 [Concomitant]
  3. ALBUTEROL [Concomitant]
  4. LIPITOR [Concomitant]
  5. VICODIN [Concomitant]
  6. SPIRONOLACTONE [Concomitant]
  7. CITALOPRAM [Concomitant]
  8. SINGULAIR [Concomitant]

REACTIONS (3)
  - CRYING [None]
  - HYPERSOMNIA [None]
  - SOMNOLENCE [None]
